FAERS Safety Report 9229516 (Version 1)
Quarter: 2013Q2

REPORT INFORMATION
  Report Type: Spontaneous
  Country: US (occurrence: US)
  Receive Date: 20130412
  Receipt Date: 20130412
  Transmission Date: 20140414
  Serious: No
  Sender: FDA-Public Use
  Company Number: US-009507513-1304USA003478

PATIENT
  Sex: Female
  Weight: 142 kg

DRUGS (2)
  1. IMPLANON [Suspect]
     Indication: CONTRACEPTION
     Dosage: 1 DF, UNK
     Route: 059
     Dates: start: 2009, end: 201211
  2. HORMONAL CONTRACEPTIVES (UNSPECIFIED) [Concomitant]

REACTIONS (1)
  - Phantom pain [Not Recovered/Not Resolved]
